FAERS Safety Report 17559964 (Version 1)
Quarter: 2020Q1

REPORT INFORMATION
  Report Type: Spontaneous
  Country: US (occurrence: US)
  Receive Date: 20200319
  Receipt Date: 20200319
  Transmission Date: 20200409
  Serious: No
  Sender: FDA-Public Use
  Company Number: US-MYLANLABS-2020M1027689

PATIENT
  Sex: Female
  Weight: 88 kg

DRUGS (1)
  1. NIZATIDINE CAPSULES, USP [Suspect]
     Active Substance: NIZATIDINE
     Indication: GASTROOESOPHAGEAL REFLUX DISEASE
     Dosage: TWICE DAILY
     Route: 048
     Dates: start: 2020

REACTIONS (1)
  - Recalled product administered [Not Recovered/Not Resolved]
